FAERS Safety Report 23863864 (Version 4)
Quarter: 2024Q3

REPORT INFORMATION
  Report Type: Spontaneous
  Country: US (occurrence: US)
  Receive Date: 20240516
  Receipt Date: 20240816
  Transmission Date: 20241016
  Serious: No
  Sender: PFIZER
  Company Number: US-PFIZER INC-202400104967

PATIENT
  Age: 72 Year
  Sex: Female
  Weight: 58.06 kg

DRUGS (1)
  1. ESTRING [Suspect]
     Active Substance: ESTRADIOL
     Dosage: UNK

REACTIONS (3)
  - Poor quality device used [Unknown]
  - Device delivery system issue [Unknown]
  - Liquid product physical issue [Unknown]
